FAERS Safety Report 9789259 (Version 1)
Quarter: 2013Q4

REPORT INFORMATION
  Report Type: Spontaneous
  Country: BR (occurrence: BR)
  Receive Date: 20131230
  Receipt Date: 20131230
  Transmission Date: 20140711
  Serious: Yes (Other)
  Sender: FDA-Public Use
  Company Number: BR-WATSON-2013-23764

PATIENT
  Age: 45 Year
  Sex: Male

DRUGS (2)
  1. PREDNISOLONE (UNKNOWN) [Suspect]
     Indication: KERATITIS
     Dosage: 1 % ONE DROP EVERY HOUR
     Route: 031
  2. PREDNISOLONE (UNKNOWN) [Suspect]
     Dosage: SOL 1%, FOUR TIMES DAILY
     Route: 031

REACTIONS (1)
  - Intraocular pressure increased [Recovering/Resolving]
